FAERS Safety Report 13087001 (Version 4)
Quarter: 2017Q1

REPORT INFORMATION
  Report Type: Report from Study
  Country: BR (occurrence: BR)
  Receive Date: 20170105
  Receipt Date: 20170320
  Transmission Date: 20170428
  Serious: Yes (Other)
  Sender: FDA-Public Use
  Company Number: BR-ALEXION PHARMACEUTICALS INC.-A201610561

PATIENT
  Age: 47 Year
  Sex: Male

DRUGS (2)
  1. SOLIRIS [Suspect]
     Active Substance: ECULIZUMAB
     Indication: PAROXYSMAL NOCTURNAL HAEMOGLOBINURIA
     Dosage: 600 MG, QW
     Route: 042
     Dates: start: 20150806, end: 20150827
  2. SOLIRIS [Suspect]
     Active Substance: ECULIZUMAB
     Dosage: 900 MG, Q2W
     Route: 042
     Dates: start: 20150903

REACTIONS (15)
  - Asthenia [Recovering/Resolving]
  - Inappropriate schedule of drug administration [Unknown]
  - Increased appetite [Unknown]
  - Fatigue [Recovered/Resolved]
  - Underdose [Recovered/Resolved]
  - Fluid retention [Unknown]
  - Ocular icterus [Unknown]
  - Haemolysis [Recovered/Resolved]
  - Haemoglobin decreased [Unknown]
  - Haemoglobinuria [Recovered/Resolved]
  - Jaundice [Not Recovered/Not Resolved]
  - Chromaturia [Recovered/Resolved]
  - Pain in extremity [Not Recovered/Not Resolved]
  - Dyspnoea [Recovered/Resolved]
  - Blood lactate dehydrogenase increased [Unknown]

NARRATIVE: CASE EVENT DATE: 20161128
